FAERS Safety Report 14250969 (Version 3)
Quarter: 2021Q3

REPORT INFORMATION
  Report Type: Spontaneous
  Country: GB (occurrence: GB)
  Receive Date: 20171205
  Receipt Date: 20210917
  Transmission Date: 20211014
  Serious: Yes (Other)
  Sender: FDA-Public Use
  Company Number: PHHY2017GB174486

PATIENT
  Age: 82 Year
  Sex: Male

DRUGS (4)
  1. EPLERENONE. [Suspect]
     Active Substance: EPLERENONE
     Indication: LEFT VENTRICULAR FAILURE
     Dosage: 50 MG, 1X/DAY
     Route: 048
     Dates: start: 20160815, end: 20171004
  2. CANDESARTAN. [Suspect]
     Active Substance: CANDESARTAN
     Indication: LEFT VENTRICULAR FAILURE
     Dosage: 16 MG, 1X/DAY
     Route: 048
     Dates: start: 20121015, end: 20171004
  3. UMECLIDINIUM BROMIDE [Suspect]
     Active Substance: UMECLIDINIUM BROMIDE
     Indication: CHRONIC OBSTRUCTIVE PULMONARY DISEASE
     Dosage: 30
     Route: 065
     Dates: start: 20170220
  4. BUMETANIDE. [Suspect]
     Active Substance: BUMETANIDE
     Indication: LEFT VENTRICULAR FAILURE
     Dosage: 1 MG, 2X/DAY
     Route: 048
     Dates: start: 20161007, end: 20171004

REACTIONS (1)
  - Acute kidney injury [Recovered/Resolved]

NARRATIVE: CASE EVENT DATE: 20170901
